FAERS Safety Report 4582159-9 (Version None)
Quarter: 2005Q1

REPORT INFORMATION
  Report Type: 
  Country: None (occurrence: None)
  Receive Date: 20050119
  Receipt Date: 20040218
  Transmission Date: 20050727
  Serious: Yes (Hospitalization)
  Sender: FDA-Public Use
  Company Number: A03200400536

PATIENT
  Age: 68 Year
  Sex: Male

DRUGS (9)
  1. PLAVIX [Suspect]
     Dosage: 75 MG QD - ORAL
     Route: 048
     Dates: start: 20030924, end: 20031229
  2. PREDNISONE [Suspect]
     Dosage: 10 MG QD - ORAL
     Route: 048
     Dates: start: 20010329
  3. CELEBREX [Suspect]
     Dosage: 200 MG QD - ORAL
     Route: 048
     Dates: start: 20020502, end: 20031229
  4. INTERFERON GAMMA-1B - UNKNOWN - UNIT DOSE : UNKNOWN [Suspect]
     Indication: IDIOPATHIC PULMONARY FIBROSIS
     Dosage: SUBCUTANEOUS
     Route: 058
     Dates: end: 20031229
  5. ASPIRIN [Suspect]
     Dosage: 81 MG QD - ORAL
     Route: 048
     Dates: start: 20030924, end: 20031229
  6. BENZONATATE [Concomitant]
  7. ACETAMINOPHEN [Concomitant]
  8. FLUTICASONE PROPIONATE [Concomitant]
  9. CETIRIZINE HYDROCHLORIDE [Concomitant]

REACTIONS (6)
  - ANAEMIA [None]
  - DIZZINESS [None]
  - DYSPNOEA [None]
  - GASTRIC ULCER [None]
  - HAEMATOCHEZIA [None]
  - HYPOVOLAEMIA [None]
